FAERS Safety Report 9757280 (Version 3)
Quarter: 2013Q4

REPORT INFORMATION
  Report Type: Report from Study
  Country: US (occurrence: US)
  Receive Date: 20131213
  Receipt Date: 20131227
  Transmission Date: 20140711
  Serious: Yes (Other)
  Sender: FDA-Public Use
  Company Number: US-ABBVIE-13P-163-1176853-00

PATIENT
  Age: 56 Year
  Sex: Female

DRUGS (7)
  1. HUMIRA [Suspect]
     Indication: CROHN^S DISEASE
     Dates: start: 20131017, end: 20131128
  2. HUMIRA [Suspect]
     Dates: start: 20131219
  3. OMEPRAZOLE [Suspect]
     Indication: GASTROOESOPHAGEAL REFLUX DISEASE
     Dosage: 30 MINUTES BEFORE BREAKFAST
  4. OMEPRAZOLE [Suspect]
     Indication: ULCER
     Dates: start: 20131202
  5. FLUOXETINE [Concomitant]
     Indication: DEPRESSION
  6. FUROSEMIDE [Concomitant]
     Indication: FLUID RETENTION
     Dosage: AS NEEDED
  7. AZATHIOPRINE [Concomitant]
     Indication: CROHN^S DISEASE

REACTIONS (14)
  - Visual field defect [Unknown]
  - Visual field defect [Unknown]
  - Vision blurred [Unknown]
  - Vision blurred [Unknown]
  - Injection site pain [Not Recovered/Not Resolved]
  - Injection site bruising [Unknown]
  - Headache [Not Recovered/Not Resolved]
  - Dizziness [Recovered/Resolved]
  - Nausea [Recovered/Resolved]
  - Nasal oedema [Recovered/Resolved]
  - Erythema [Recovered/Resolved]
  - Rhinorrhoea [Unknown]
  - Joint swelling [Unknown]
  - Migraine with aura [Unknown]
